FAERS Safety Report 14980517 (Version 9)
Quarter: 2019Q3

REPORT INFORMATION
  Report Type: Spontaneous
  Country: US (occurrence: US)
  Receive Date: 20180606
  Receipt Date: 20190911
  Transmission Date: 20191004
  Serious: Yes (Other)
  Sender: FDA-Public Use
  Company Number: US-ACTELION-A-US2018-173266

PATIENT
  Age: 74 Year
  Sex: Female

DRUGS (2)
  1. TRACLEER [Suspect]
     Active Substance: BOSENTAN
     Indication: PULMONARY ARTERIAL HYPERTENSION
     Dosage: 125 MG, BID
     Route: 048
     Dates: start: 20090118
  2. TADALAFIL. [Concomitant]
     Active Substance: TADALAFIL
     Dosage: 40 MG, QD
     Dates: start: 20150603

REACTIONS (19)
  - Red blood cell count abnormal [Unknown]
  - Ear infection [Unknown]
  - Flushing [Unknown]
  - Hypotension [Unknown]
  - Anaemia [Unknown]
  - Nausea [Unknown]
  - Diarrhoea [Unknown]
  - Oedema peripheral [Unknown]
  - Colitis ulcerative [Unknown]
  - Ear pain [Unknown]
  - Retching [Unknown]
  - Intentional dose omission [Unknown]
  - Lung disorder [Unknown]
  - Transfusion [Unknown]
  - Dyspnoea [Unknown]
  - Headache [Unknown]
  - Hyperhidrosis [Unknown]
  - Blood iron decreased [Unknown]
  - Humidity intolerance [Unknown]

NARRATIVE: CASE EVENT DATE: 20180702
